FAERS Safety Report 7398846-3 (Version None)
Quarter: 2011Q2

REPORT INFORMATION
  Report Type: 
  Country: None (occurrence: None)
  Receive Date: 20110404
  Receipt Date: 20110404
  Transmission Date: 20111010
  Serious: Yes (Hospitalization)
  Sender: FDA-Public Use
  Company Number: None

PATIENT
  Age: 37 Year
  Sex: Male
  Weight: 99.7913 kg

DRUGS (1)
  1. LAMICTAL [Suspect]
     Indication: BIPOLAR DISORDER
     Dosage: PO
     Route: 048

REACTIONS (6)
  - SWOLLEN TONGUE [None]
  - TONGUE DISORDER [None]
  - AGITATION [None]
  - MUSCLE TWITCHING [None]
  - TREMOR [None]
  - SPEECH DISORDER [None]
